FAERS Safety Report 6021342-2 (Version None)
Quarter: 2008Q4

REPORT INFORMATION
  Report Type: 
  Country: None (occurrence: None)
  Receive Date: 20081229
  Receipt Date: 20081223
  Transmission Date: 20090506
  Serious: Yes (Death)
  Sender: FDA-Public Use
  Company Number: A0761574A

PATIENT
  Age: 40 Year
  Sex: Female
  Weight: 49 kg

DRUGS (1)
  1. SERETIDE [Suspect]
     Route: 055
     Dates: start: 20070101, end: 20080623

REACTIONS (1)
  - CEREBROVASCULAR ACCIDENT [None]
